FAERS Safety Report 4525787-9 (Version None)
Quarter: 2004Q4

REPORT INFORMATION
  Report Type: 
  Country: None (occurrence: None)
  Receive Date: 20041116
  Receipt Date: 20040910
  Transmission Date: 20050328
  Serious: No
  Sender: FDA-Public Use
  Company Number: S04-USA-06095-01

PATIENT
  Age: 97 Year
  Sex: Female

DRUGS (7)
  1. NAMENDA [Suspect]
     Indication: DEMENTIA
     Dosage: 15 MG QD PO
     Route: 048
     Dates: start: 20040907
  2. NAMENDA [Suspect]
     Indication: DEMENTIA
     Dosage: 5 MG QD PO
     Route: 048
     Dates: start: 20040824, end: 20040830
  3. NAMENDA [Suspect]
     Indication: DEMENTIA
     Dosage: 10 MG QD PO
     Route: 048
     Dates: start: 20040831, end: 20040906
  4. ARICEPT [Concomitant]
  5. PRILOSEC [Concomitant]
  6. VITAMIN [Concomitant]
  7. B12 INJECTION [Concomitant]

REACTIONS (2)
  - CONFUSIONAL STATE [None]
  - INSOMNIA [None]
